FAERS Safety Report 17117078 (Version 1)
Quarter: 2019Q4

REPORT INFORMATION
  Report Type: Spontaneous
  Country: US (occurrence: US)
  Receive Date: 20191205
  Receipt Date: 20191205
  Transmission Date: 20200122
  Serious: No
  Sender: FDA-Public Use
  Company Number: US-ASTRAZENECA-2019SF58584

PATIENT
  Sex: Female
  Weight: 90.7 kg

DRUGS (6)
  1. URSODIOL. [Concomitant]
     Active Substance: URSODIOL
     Indication: CHOLELITHIASIS
     Dosage: 300.0MG UNKNOWN
  2. DICLOFENAC [Concomitant]
     Active Substance: DICLOFENAC
     Indication: PAIN
  3. JENTADUETO [Concomitant]
     Active Substance: LINAGLIPTIN\METFORMIN HYDROCHLORIDE
     Indication: DIABETES MELLITUS
     Dosage: 1000.0MG UNKNOWN
  4. SIMVASTIN [Concomitant]
     Active Substance: SIMVASTATIN
  5. BYDUREON [Suspect]
     Active Substance: EXENATIDE
     Indication: TYPE 2 DIABETES MELLITUS
     Route: 065
     Dates: start: 20191031
  6. SYNTHROID [Concomitant]
     Active Substance: LEVOTHYROXINE SODIUM
     Indication: HYPOTHYROIDISM
     Dosage: 88.0UG UNKNOWN

REACTIONS (6)
  - Fatigue [Recovered/Resolved]
  - Hyperhidrosis [Recovered/Resolved]
  - Feeling abnormal [Unknown]
  - Nausea [Not Recovered/Not Resolved]
  - Migraine [Not Recovered/Not Resolved]
  - Asthenia [Not Recovered/Not Resolved]

NARRATIVE: CASE EVENT DATE: 20191031
